FAERS Safety Report 7184409-1 (Version None)
Quarter: 2010Q4

REPORT INFORMATION
  Report Type: 
  Country: None (occurrence: None)
  Receive Date: 20101222
  Receipt Date: 20091228
  Transmission Date: 20110411
  Serious: No
  Sender: FDA-Public Use
  Company Number: US-PFIZER INC-2009315619

PATIENT
  Sex: Female
  Weight: 63.5 kg

DRUGS (1)
  1. DIFLUCAN [Suspect]
     Indication: FUNGAL INFECTION
     Dates: start: 20091201

REACTIONS (2)
  - INSOMNIA [None]
  - STOMATITIS [None]
